FAERS Safety Report 23884120 (Version 1)
Quarter: 2024Q2

REPORT INFORMATION
  Report Type: Spontaneous
  Country: US (occurrence: None)
  Receive Date: 20240521
  Receipt Date: 20240521
  Transmission Date: 20240715
  Serious: No
  Sender: FDA-Public Use
  Company Number: None

PATIENT
  Age: 65 Year
  Sex: Female

DRUGS (1)
  1. REPATHA [Suspect]
     Active Substance: EVOLOCUMAB
     Dosage: 1 ML EVERY 2 WEEKS SUBCUTANNEOUS
     Route: 058
     Dates: start: 20240222, end: 20240408

REACTIONS (2)
  - Injection site pain [None]
  - Wrong technique in product usage process [None]

NARRATIVE: CASE EVENT DATE: 20240408
